FAERS Safety Report 6059216-3 (Version None)
Quarter: 2009Q1

REPORT INFORMATION
  Report Type: 
  Country: None (occurrence: None)
  Receive Date: 20090128
  Receipt Date: 20090128
  Transmission Date: 20090719
  Serious: No
  Sender: FDA-Public Use
  Company Number: None

PATIENT
  Age: 23 Year
  Sex: Female
  Weight: 55.7924 kg

DRUGS (1)
  1. LITHIUM CARBONATE [Suspect]

REACTIONS (7)
  - ABNORMAL BEHAVIOUR [None]
  - AMNESIA [None]
  - CONDITION AGGRAVATED [None]
  - PARTNER STRESS [None]
  - SENSORY DISTURBANCE [None]
  - STRESS [None]
  - TARDIVE DYSKINESIA [None]
